FAERS Safety Report 14981578 (Version 2)
Quarter: 2018Q2

REPORT INFORMATION
  Report Type: Spontaneous
  Country: DE (occurrence: DE)
  Receive Date: 20180607
  Receipt Date: 20180614
  Transmission Date: 20180711
  Serious: Yes (Hospitalization, Other)
  Sender: FDA-Public Use
  Company Number: PHHY2018DE012559

PATIENT
  Age: 67 Year
  Sex: Female

DRUGS (6)
  1. PROGESTERONE. [Suspect]
     Active Substance: PROGESTERONE
     Indication: MENOPAUSAL SYMPTOMS
  2. LEGALON [Concomitant]
     Active Substance: DIETARY SUPPLEMENT\HERBALS\MILK THISTLE
     Indication: CHRONIC HEPATITIS
     Route: 065
  3. PROGESTERONE. [Suspect]
     Active Substance: PROGESTERONE
     Indication: PREVENTION OF ENDOMETRIAL HYPERPLASIA
     Dosage: 1 MG, QD (1 CAPSULE ONCE DAILY/ 100 MG DAILY. (UNKNOWN, 1 IN 1 D)
     Route: 065
     Dates: start: 200701, end: 20171229
  4. ESTRADIOL. [Suspect]
     Active Substance: ESTRADIOL
     Indication: MENOPAUSAL SYMPTOMS
  5. ESTRADIOL. [Suspect]
     Active Substance: ESTRADIOL
     Indication: HORMONE REPLACEMENT THERAPY
     Dosage: 1 OT, QD (1 TO 2 PUFFS ONCE DAILY (UNKNOWN, 1 IN 1 D)
     Route: 062
     Dates: start: 200701, end: 20171229
  6. BISOPROLOL [Concomitant]
     Active Substance: BISOPROLOL
     Indication: HYPERTENSION
     Dosage: 1 DF, QD (UNKNOWN, 1 IN 1 D)
     Route: 048

REACTIONS (8)
  - Disturbance in attention [Not Recovered/Not Resolved]
  - Muscular weakness [Not Recovered/Not Resolved]
  - Contraindicated product administered [Not Recovered/Not Resolved]
  - Urinary incontinence [Not Recovered/Not Resolved]
  - Gait disturbance [Not Recovered/Not Resolved]
  - Endometrial thickening [Recovered/Resolved]
  - Memory impairment [Not Recovered/Not Resolved]
  - Hepatic cancer [Recovered/Resolved with Sequelae]

NARRATIVE: CASE EVENT DATE: 2007
